FAERS Safety Report 6380406-4 (Version None)
Quarter: 2009Q3

REPORT INFORMATION
  Report Type: 
  Country: None (occurrence: None)
  Receive Date: 20090929
  Receipt Date: 20090923
  Transmission Date: 20100115
  Serious: Yes (Hospitalization)
  Sender: FDA-Public Use
  Company Number: FR-BRISTOL-MYERS SQUIBB COMPANY-14749873

PATIENT
  Age: 47 Year
  Sex: Male

DRUGS (5)
  1. ELISOR TABS [Suspect]
     Indication: HYPERCHOLESTEROLAEMIA
     Dates: start: 20090724, end: 20090820
  2. GLUCOPHAGE [Suspect]
     Dates: start: 20090724
  3. LIPANTHYL [Concomitant]
  4. SERETIDE [Concomitant]
     Dates: start: 20050101
  5. ISOPTIN [Concomitant]
     Dates: start: 20050101

REACTIONS (1)
  - SOMNAMBULISM [None]
